FAERS Safety Report 6098182-1 (Version None)
Quarter: 2009Q1

REPORT INFORMATION
  Report Type: 
  Country: None (occurrence: None)
  Receive Date: 20090227
  Receipt Date: 20090215
  Transmission Date: 20090719
  Serious: Yes (Hospitalization)
  Sender: FDA-Public Use
  Company Number: QA-BAUSCH-2009BL000697

PATIENT
  Age: 20 Year
  Sex: Male

DRUGS (1)
  1. DICLOFENAC [Suspect]
     Indication: PAIN IN EXTREMITY
     Route: 030

REACTIONS (1)
  - EMBOLIA CUTIS MEDICAMENTOSA [None]
